FAERS Safety Report 6304015-8 (Version None)
Quarter: 2009Q3

REPORT INFORMATION
  Report Type: 
  Country: None (occurrence: None)
  Receive Date: 20090810
  Receipt Date: 20090729
  Transmission Date: 20100115
  Serious: Yes (Hospitalization, Disabling)
  Sender: FDA-Public Use
  Company Number: JP-PFIZER INC-2008059685

PATIENT
  Age: 68 Year

DRUGS (4)
  1. CELECOX [Suspect]
     Indication: OSTEOARTHRITIS
     Dosage: 200 MG, 1X/DAY
     Route: 048
     Dates: start: 20080112
  2. GASTER OD [Concomitant]
     Indication: GASTRIC ULCER
     Dosage: 20 MG, 2X/DAY
     Route: 048
     Dates: start: 20021224
  3. THYRADIN S [Concomitant]
     Indication: HYPOTHYROIDISM
     Dosage: DAILY
     Route: 048
     Dates: start: 20040707
  4. OPALMON [Concomitant]
     Indication: RAYNAUD'S PHENOMENON
     Dosage: 5 UG, 3X/DAY
     Route: 048
     Dates: start: 20080417

REACTIONS (1)
  - SUBARACHNOID HAEMORRHAGE [None]
